FAERS Safety Report 18324781 (Version 1)
Quarter: 2020Q3

REPORT INFORMATION
  Report Type: Spontaneous
  Country: US (occurrence: US)
  Receive Date: 20200929
  Receipt Date: 20200929
  Transmission Date: 20201103
  Serious: Yes (Hospitalization)
  Sender: FDA-Public Use
  Company Number: None

PATIENT
  Sex: Male

DRUGS (1)
  1. CYCLOPHOSPHAMIDE. [Suspect]
     Active Substance: CYCLOPHOSPHAMIDE
     Indication: PLASMA CELL MYELOMA IN REMISSION
     Dosage: ?          OTHER FREQUENCY:DAYS 1 AND 15;?
     Route: 048
     Dates: start: 20190829

REACTIONS (2)
  - Pneumonia [None]
  - Therapy interrupted [None]
